FAERS Safety Report 10417918 (Version 1)
Quarter: 2014Q2

REPORT INFORMATION
  Report Type: Spontaneous
  Country: US (occurrence: None)
  Receive Date: 20140609
  Receipt Date: 20140609
  Transmission Date: 20141212
  Serious: No
  Sender: FDA-Public Use
  Company Number: 2014TUS001385

PATIENT
  Age: 30 Year
  Sex: Female

DRUGS (3)
  1. BRINTELLIX (VORTIOXETINE) TABLET [Suspect]
     Indication: MAJOR DEPRESSION
     Route: 048
     Dates: start: 20140217, end: 20140225
  2. OPIOIDS [Concomitant]
  3. NARCOTICS [Concomitant]

REACTIONS (2)
  - Nausea [None]
  - Vomiting [None]
